FAERS Safety Report 13881847 (Version 2)
Quarter: 2017Q3

REPORT INFORMATION
  Report Type: Report from Study
  Country: PK (occurrence: PK)
  Receive Date: 20170818
  Receipt Date: 20170829
  Transmission Date: 20171127
  Serious: Yes (Other)
  Sender: FDA-Public Use
  Company Number: PHHY2017PK120197

PATIENT
  Age: 63 Year
  Sex: Female
  Weight: 58 kg

DRUGS (2)
  1. AFINITOR [Suspect]
     Active Substance: EVEROLIMUS
     Dosage: 5 MG, QD
     Route: 048
  2. AFINITOR [Suspect]
     Active Substance: EVEROLIMUS
     Indication: NEUROENDOCRINE TUMOUR
     Dosage: 10 MG, QD
     Route: 048
     Dates: start: 20170608

REACTIONS (8)
  - Blood glucose increased [Not Recovered/Not Resolved]
  - Pain [Not Recovered/Not Resolved]
  - Hyperglycaemia [Unknown]
  - Fatigue [Unknown]
  - Lethargy [Not Recovered/Not Resolved]
  - Weight decreased [Unknown]
  - Irritability [Not Recovered/Not Resolved]
  - Polyuria [Unknown]

NARRATIVE: CASE EVENT DATE: 20170815
